FAERS Safety Report 4506237-5 (Version None)
Quarter: 2004Q4

REPORT INFORMATION
  Report Type: 
  Country: None (occurrence: None)
  Receive Date: 20041119
  Receipt Date: 20041108
  Transmission Date: 20050328
  Serious: Yes (Hospitalization)
  Sender: FDA-Public Use
  Company Number: HK-MERCK-0411HKG00006

PATIENT
  Age: 71 Year
  Sex: Male

DRUGS (11)
  1. VIOXX [Suspect]
     Indication: BONE PAIN
     Route: 048
  2. AMILORIDE HYDROCHLORIDE AND HYDROCHLOROTHIAZIDE [Suspect]
     Indication: HYPERTENSION
     Route: 048
     Dates: end: 20040901
  3. ACETYLCYSTEINE [Concomitant]
     Indication: DRUG USE FOR UNKNOWN INDICATION
     Route: 048
  4. ASPIRIN [Concomitant]
     Indication: CARDIOVASCULAR DISORDER
     Route: 048
  5. CLOPIDOGREL BISULFATE [Concomitant]
     Indication: CARDIOVASCULAR DISORDER
     Route: 048
  6. ATORVASTATIN CALCIUM [Concomitant]
     Indication: HYPERLIPIDAEMIA
     Route: 048
  7. ACRIVASTINE [Concomitant]
     Indication: HYPERSENSITIVITY
     Route: 048
  8. ESOMEPRAZOLE MAGNESIUM [Concomitant]
     Indication: PROPHYLAXIS AGAINST GASTROINTESTINAL ULCER
     Route: 048
  9. METOPROLOL SUCCINATE [Concomitant]
     Indication: HYPERTENSION
     Route: 048
  10. IRBESARTAN [Concomitant]
     Indication: HYPERTENSION
     Route: 048
  11. BETAHISTINE MESYLATE [Concomitant]
     Indication: DRUG USE FOR UNKNOWN INDICATION
     Route: 048

REACTIONS (4)
  - BLOOD POTASSIUM INCREASED [None]
  - HYPOTENSION [None]
  - SYNCOPE [None]
  - VISION BLURRED [None]
